FAERS Safety Report 16856059 (Version 3)
Quarter: 2019Q4

REPORT INFORMATION
  Report Type: Spontaneous
  Country: US (occurrence: US)
  Receive Date: 20190926
  Receipt Date: 20191220
  Transmission Date: 20200122
  Serious: No
  Sender: FDA-Public Use
  Company Number: US-PFIZER INC-2019410892

PATIENT
  Age: 61 Year
  Sex: Male
  Weight: 104.31 kg

DRUGS (4)
  1. METHOTREXATE. [Concomitant]
     Active Substance: METHOTREXATE
     Indication: ARTHRITIS
     Dosage: 2.5 MG, UNK (OVER A YEAR AGO)
  2. PREDNISONE. [Concomitant]
     Active Substance: PREDNISONE
     Indication: ARTHRITIS
     Dosage: 6 MG, UNK (OVER A YEAR AGO)
  3. XELJANZ XR [Suspect]
     Active Substance: TOFACITINIB CITRATE
     Indication: ARTHRITIS
  4. XELJANZ XR [Suspect]
     Active Substance: TOFACITINIB CITRATE
     Indication: RHEUMATOID ARTHRITIS
     Dosage: 11 MG, DAILY
     Route: 048
     Dates: start: 20190920

REACTIONS (3)
  - Arthralgia [Unknown]
  - Gait disturbance [Unknown]
  - Pain [Unknown]
